FAERS Safety Report 19719852 (Version 2)
Quarter: 2021Q3

REPORT INFORMATION
  Report Type: Report from Study
  Country: BE (occurrence: BE)
  Receive Date: 20210819
  Receipt Date: 20210827
  Transmission Date: 20211014
  Serious: Yes (Other)
  Sender: FDA-Public Use
  Company Number: NVSC2021BE181272

PATIENT
  Sex: Female

DRUGS (4)
  1. BYL719 [Suspect]
     Active Substance: ALPELISIB
     Indication: METASTASES TO LIVER
     Dosage: 200 MG, QD
     Route: 065
     Dates: start: 2021, end: 20210709
  2. BYL719 [Suspect]
     Active Substance: ALPELISIB
     Indication: BREAST CANCER
     Dosage: 300 MG, QD
     Route: 065
     Dates: start: 202105, end: 2021
  3. BYL719 [Suspect]
     Active Substance: ALPELISIB
     Indication: METASTASES TO BONE
     Dosage: 250 MG, QD
     Route: 065
     Dates: start: 2021, end: 2021
  4. BYL719 [Suspect]
     Active Substance: ALPELISIB
     Dosage: UNK
     Route: 065
     Dates: start: 20210723, end: 20210809

REACTIONS (7)
  - Lung disorder [Unknown]
  - Aphonia [Unknown]
  - Diarrhoea [Unknown]
  - Crepitations [Unknown]
  - Pneumonia [Unknown]
  - Hyperglycaemia [Unknown]
  - Cough [Unknown]

NARRATIVE: CASE EVENT DATE: 20210720
